FAERS Safety Report 8476483-7 (Version None)
Quarter: 2012Q2

REPORT INFORMATION
  Report Type: 
  Country: None (occurrence: None)
  Receive Date: 20120628
  Receipt Date: 20120614
  Transmission Date: 20120825
  Serious: Yes (Hospitalization, Disabling)
  Sender: FDA-Public Use
  Company Number: US-MYLANLABS-2010S1013329

PATIENT
  Age: 69 Year
  Sex: Female
  Weight: 77.11 kg

DRUGS (20)
  1. LORTAB [Concomitant]
     Dosage: 7.5MG/500MG
     Route: 048
  2. GARLIC [Concomitant]
  3. LOVASTATIN [Suspect]
     Route: 048
  4. TRAMADOL HCL [Concomitant]
     Route: 048
  5. FLEXERIL [Concomitant]
  6. TEMAZEPAM [Suspect]
     Route: 048
  7. VITAMIN D [Concomitant]
  8. ALBUTEROL [Concomitant]
  9. DIPHENHIST [Concomitant]
  10. ALLI [Concomitant]
  11. LORATADINE [Concomitant]
     Route: 048
  12. BIDROCIRAL [Concomitant]
  13. FENTANYL-100 [Suspect]
     Indication: PAIN
     Dosage: CHANGE Q3D
     Route: 062
     Dates: start: 20090130, end: 20090131
  14. VITAMIN E [Concomitant]
  15. VITAMIN B-12 [Concomitant]
  16. VITAMIN D [Concomitant]
  17. THEOPHYLLINE [Concomitant]
     Route: 048
  18. COMBIVENT [Concomitant]
  19. PAROXETINE HCL [Concomitant]
     Route: 048
  20. ZINC SULFATE [Concomitant]

REACTIONS (6)
  - SENSORY LOSS [None]
  - HEPATITIS ACUTE [None]
  - MENTAL STATUS CHANGES [None]
  - RHABDOMYOLYSIS [None]
  - COMA [None]
  - AMNESIA [None]
